FAERS Safety Report 7708998-0 (Version None)
Quarter: 2011Q3

REPORT INFORMATION
  Report Type: 
  Country: None (occurrence: None)
  Receive Date: 20110825
  Receipt Date: 20110819
  Transmission Date: 20111222
  Serious: Yes (Other)
  Sender: FDA-Public Use
  Company Number: US-B.I. PHARMACEUTICALS,INC./RIDGEFIELD-2011-BP-20434BP

PATIENT

DRUGS (2)
  1. PRADAXA [Suspect]
  2. COZAAR [Concomitant]

REACTIONS (1)
  - RENAL FAILURE ACUTE [None]
